FAERS Safety Report 23480127 (Version 2)
Quarter: 2024Q1

REPORT INFORMATION
  Report Type: Spontaneous
  Country: US (occurrence: US)
  Receive Date: 20240205
  Receipt Date: 20240222
  Transmission Date: 20240410
  Serious: No
  Sender: FDA-Public Use
  Company Number: US-E2BLSMVVAL-SPO/USA/24/0001844

PATIENT
  Age: 56 Year
  Sex: Female
  Weight: 80.7394 kg

DRUGS (5)
  1. SUMATRIPTAN SUCCINATE [Suspect]
     Active Substance: SUMATRIPTAN SUCCINATE
     Indication: Migraine
     Dosage: AUTO-INJECTION SYSTEM 6 MG/0.5 ML COUNT (2 IN 1 CARTON)?TWICE A DAY
  2. SUMATRIPTAN SUCCINATE [Suspect]
     Active Substance: SUMATRIPTAN SUCCINATE
     Dosage: AUTO-INJECTION SYSTEM 6 MG/0.5 ML COUNT (2 IN 1 CARTON)?TWICE A DAY
  3. SUMATRIPTAN SUCCINATE [Suspect]
     Active Substance: SUMATRIPTAN SUCCINATE
     Dosage: AUTO-INJECTION SYSTEM 6 MG/0.5 ML COUNT (2 IN 1 CARTON)?TWICE A DAY
  4. TOPIRAMATE [Concomitant]
     Active Substance: TOPIRAMATE
  5. TYLENOL [Concomitant]
     Active Substance: ACETAMINOPHEN

REACTIONS (2)
  - Product dose omission issue [Unknown]
  - Device issue [Unknown]
